FAERS Safety Report 8334328-X (Version None)
Quarter: 2012Q2

REPORT INFORMATION
  Report Type: 
  Country: None (occurrence: None)
  Receive Date: 20120503
  Receipt Date: 20120430
  Transmission Date: 20120825
  Serious: Yes (Other)
  Sender: FDA-Public Use
  Company Number: US-PFIZER INC-2012106402

PATIENT
  Sex: Female

DRUGS (1)
  1. IBUPROFEN (ADVIL) [Suspect]
     Dosage: UNK

REACTIONS (5)
  - SUICIDE ATTEMPT [None]
  - OVERDOSE [None]
  - FEELING ABNORMAL [None]
  - FATIGUE [None]
  - DIZZINESS [None]
